FAERS Safety Report 8175833-9 (Version None)
Quarter: 2012Q1

REPORT INFORMATION
  Report Type: 
  Country: None (occurrence: None)
  Receive Date: 20120228
  Receipt Date: 20120228
  Transmission Date: 20120608
  Serious: Yes (Other)
  Sender: FDA-Public Use
  Company Number: None

PATIENT
  Age: 39 Year
  Sex: Male

DRUGS (2)
  1. CLONAZEPAM [Suspect]
  2. LITHIUM CARBONATE [Concomitant]

REACTIONS (2)
  - TREATMENT FAILURE [None]
  - ANXIETY [None]
